FAERS Safety Report 16023116 (Version 1)
Quarter: 2019Q1

REPORT INFORMATION
  Report Type: Spontaneous
  Country: ES (occurrence: ES)
  Receive Date: 20190301
  Receipt Date: 20190301
  Transmission Date: 20190418
  Serious: Yes (Other)
  Sender: FDA-Public Use
  Company Number: ES-JNJFOC-20190230023

PATIENT
  Age: 33 Year
  Sex: Female

DRUGS (1)
  1. INVEGA [Suspect]
     Active Substance: PALIPERIDONE
     Indication: PRODUCT USED FOR UNKNOWN INDICATION
     Dosage: HALF TABLET AT NIGHT
     Route: 048

REACTIONS (6)
  - Choking [Unknown]
  - Off label use [Unknown]
  - Eye swelling [Unknown]
  - Wrong technique in product usage process [Unknown]
  - Influenza [Unknown]
  - Respiratory disorder [Unknown]
